FAERS Safety Report 14990905 (Version 6)
Quarter: 2018Q3

REPORT INFORMATION
  Report Type: Report from Study
  Country: DE (occurrence: DE)
  Receive Date: 20180608
  Receipt Date: 20180806
  Transmission Date: 20181010
  Serious: Yes (Hospitalization, Other)
  Sender: FDA-Public Use
  Company Number: US-ASTRAZENECA-2018SE75042

PATIENT
  Age: 64 Year
  Sex: Male
  Weight: 88.4 kg

DRUGS (61)
  1. MEDI4736 (DURVALUMAB) [Suspect]
     Active Substance: DURVALUMAB
     Indication: PLASMA CELL MYELOMA
     Route: 041
     Dates: start: 20161215, end: 20161215
  2. POMALIDOMIDE [Suspect]
     Active Substance: POMALIDOMIDE
     Indication: PLASMA CELL MYELOMA
     Route: 048
     Dates: start: 20170209, end: 20170301
  3. MELPHALAN. [Suspect]
     Active Substance: MELPHALAN
     Indication: PLASMA CELL MYELOMA
     Route: 065
     Dates: start: 20120512, end: 20120513
  4. CALCILAC [Concomitant]
     Active Substance: CALCIUM CARBONATE
     Indication: OSTEOPOROSIS PROPHYLAXIS
     Dosage: 1 TABLET
     Route: 048
     Dates: start: 2015, end: 20180525
  5. DIMENHYDRINATE. [Concomitant]
     Active Substance: DIMENHYDRINATE
     Indication: COLECTOMY
     Route: 041
     Dates: start: 20180615, end: 20180615
  6. METRONIDAZOLE. [Concomitant]
     Active Substance: METRONIDAZOLE
     Indication: COLECTOMY
     Dosage: 500 MILLIGRAM
     Route: 041
     Dates: start: 20180615, end: 20180615
  7. PANTOZOL [Concomitant]
     Active Substance: PANTOPRAZOLE SODIUM
     Indication: GASTROOESOPHAGEAL REFLUX PROPHYLAXIS
     Dosage: 4 MILLIGRAM
     Route: 048
     Dates: start: 20170410, end: 20180525
  8. ASPIRIN. [Concomitant]
     Active Substance: ASPIRIN
     Indication: THROMBOSIS PROPHYLAXIS
     Dosage: 100 MILLIGRAM
     Route: 048
     Dates: start: 20171019, end: 20180525
  9. FERROUS GLYCINE SULFATE [Concomitant]
     Active Substance: FERROUS GLYCINE SULFATE
     Indication: ANAEMIA
     Dosage: 100 MILLIGRAM
     Route: 048
     Dates: start: 20171019, end: 20180525
  10. PALLADON [Concomitant]
     Active Substance: HYDROMORPHONE
     Indication: BACK PAIN
     Dosage: 16 MILLIGRAM
     Route: 048
     Dates: start: 20171116, end: 20180525
  11. JONOSTERIL (CALCIUM ACETATE\MAGNESIUM ACETATE\POTASSIUM ACETATE\SODIUM ACETATE\SODIUM CHLORIDE) [Concomitant]
     Active Substance: CALCIUM ACETATE\MAGNESIUM ACETATE\POTASSIUM ACETATE\SODIUM ACETATE\SODIUM CHLORI
     Indication: PROPHYLAXIS AGAINST DEHYDRATION
     Dosage: 500 MILLILITER
     Route: 041
     Dates: start: 20180503, end: 20180503
  12. ATRACURIUM [Concomitant]
     Active Substance: ATRACURIUM
     Indication: ANAESTHESIA
     Dosage: 65 MILLIGRAM
     Route: 041
     Dates: start: 20180615, end: 20180615
  13. GLYCEROL [Concomitant]
     Active Substance: GLYCERIN
     Indication: CONSTIPATION PROPHYLAXIS
     Dosage: 1 MILLIGRAM
     Route: 054
     Dates: start: 20180617, end: 20180617
  14. METOCLOPRAMIDE. [Concomitant]
     Active Substance: METOCLOPRAMIDE
     Indication: PROPHYLAXIS OF NAUSEA AND VOMITING
     Dosage: 10 MILLIGRAM
     Route: 041
     Dates: start: 20180618, end: 20180620
  15. FORTIMEL [Concomitant]
     Active Substance: DIETARY SUPPLEMENT
     Indication: NUTRITIONAL SUPPLEMENTATION
     Route: 048
     Dates: start: 201807, end: 201807
  16. PREGABALIN. [Concomitant]
     Active Substance: PREGABALIN
     Indication: POLYNEUROPATHY
     Dosage: 525 MILLIGRAM
     Route: 048
     Dates: start: 201807
  17. MOVICOL [Concomitant]
     Active Substance: POLYETHYLENE GLYCOL 3350\POTASSIUM CHLORIDE\SODIUM BICARBONATE\SODIUM CHLORIDE
     Indication: CONSTIPATION
     Route: 048
     Dates: start: 20171008, end: 20180525
  18. DULCOLAX NOS [Concomitant]
     Active Substance: BISACODYL OR DOCUSATE SODIUM
     Indication: CONSTIPATION PROPHYLAXIS
     Dosage: 1 DOSAGE FORMS
     Route: 054
     Dates: start: 20180624, end: 20180625
  19. NOVALGIN (METAMIZOLE SODIUM) [Concomitant]
     Active Substance: METAMIZOLE SODIUM
     Indication: COLECTOMY
     Route: 048
     Dates: start: 20180209, end: 20180525
  20. BONDIOL [Concomitant]
     Active Substance: ALFACALCIDOL
     Indication: OSTEOPOROSIS PROPHYLAXIS
     Dosage: 1 MICROGRAM
     Route: 048
     Dates: start: 20180309, end: 20180405
  21. PROPOFOL. [Concomitant]
     Active Substance: PROPOFOL
     Indication: SURGERY
     Dosage: 130 MILLIGRAM
     Route: 041
     Dates: start: 20180605, end: 20180605
  22. IBUPROFEN. [Concomitant]
     Active Substance: IBUPROFEN
     Indication: BACK PAIN
     Dosage: 1600 MILLIGRAM
     Route: 048
     Dates: start: 20180615, end: 20180615
  23. BUPIVACAIN [Concomitant]
     Active Substance: BUPIVACAINE
     Indication: ANAESTHESIA
     Dosage: 3 MILLILITER
     Route: 048
     Dates: start: 20180615, end: 20180615
  24. PRILOCAINE [Concomitant]
     Active Substance: PRILOCAINE
     Indication: ANAESTHESIA
     Dosage: 5 MILLIGRAM
     Route: 061
     Dates: start: 20180615, end: 20180615
  25. DEXAMETHASONE. [Suspect]
     Active Substance: DEXAMETHASONE
     Indication: PLASMA CELL MYELOMA
     Route: 048
     Dates: start: 20170209, end: 20170302
  26. ZOMETA [Concomitant]
     Active Substance: ZOLEDRONIC ACID
     Indication: PROPHYLAXIS
     Dosage: 4 MILLIGRAM
     Route: 041
     Dates: start: 20171214, end: 20180525
  27. PIRITRAMIDE [Concomitant]
     Active Substance: PIRITRAMIDE
     Indication: COLECTOMY
     Route: 041
     Dates: start: 20180615, end: 20180615
  28. LAKTULOSE [Concomitant]
     Indication: CONSTIPATION PROPHYLAXIS
     Route: 048
     Dates: start: 20180615
  29. PALLADON [Concomitant]
     Active Substance: HYDROMORPHONE
     Indication: ADENOCARCINOMA
     Dosage: 16 MILLIGRAM
     Route: 048
     Dates: start: 20171116, end: 20180525
  30. IBUPROFEN. [Concomitant]
     Active Substance: IBUPROFEN
     Indication: COLECTOMY
     Dosage: 1600 MILLIGRAM
     Route: 048
     Dates: start: 20180615, end: 20180615
  31. CEFUROXIME. [Concomitant]
     Active Substance: CEFUROXIME
     Indication: COLECTOMY
     Dosage: 1.5 GRAM
     Route: 041
     Dates: start: 20180615, end: 20180615
  32. RINGER?LACTAT [Concomitant]
     Indication: COLECTOMY
     Dosage: 1000 MILLIGRAM
     Route: 041
     Dates: start: 20180615, end: 20180615
  33. ROPIVACAINE [Concomitant]
     Active Substance: ROPIVACAINE
     Indication: COLECTOMY
     Dosage: 400 MILLIGRAM
     Route: 048
     Dates: start: 20180615, end: 20180616
  34. DIMETINDENE [Concomitant]
     Active Substance: DIMETHINDENE
     Indication: PREMEDICATION
     Dosage: 4 MILLIGRAM
     Route: 041
     Dates: start: 20161215, end: 20180525
  35. NOVALGIN (METAMIZOLE SODIUM) [Concomitant]
     Active Substance: METAMIZOLE SODIUM
     Indication: ARTHROPATHY
     Route: 048
     Dates: start: 20180209, end: 20180525
  36. PROPOFOL. [Concomitant]
     Active Substance: PROPOFOL
     Indication: ANAESTHESIA
     Dosage: 130 MILLIGRAM
     Route: 041
     Dates: start: 20180605, end: 20180605
  37. PALLADON [Concomitant]
     Active Substance: HYDROMORPHONE
     Indication: ARTHRALGIA
     Dosage: 16 MILLIGRAM
     Route: 048
     Dates: start: 20171116, end: 20180525
  38. LAXANS [Concomitant]
     Indication: CONSTIPATION PROPHYLAXIS
     Dosage: 20 DROPS
     Route: 048
     Dates: start: 20180710
  39. ATACAND [Concomitant]
     Active Substance: CANDESARTAN CILEXETIL
     Indication: HYPERTENSION
     Dosage: 8 MILLIGRAM
     Route: 048
     Dates: start: 20171214, end: 20180525
  40. BIFITERAL [Concomitant]
     Active Substance: LACTULOSE
     Indication: CONSTIPATION PROPHYLAXIS
     Dosage: 30 MILLILITER
     Route: 048
     Dates: start: 20180209, end: 20180525
  41. MACROGOL [Concomitant]
     Active Substance: POLYETHYLENE GLYCOLS
     Indication: CONSTIPATION PROPHYLAXIS
     Dosage: 1 BAG
     Route: 048
     Dates: start: 20180603, end: 20180603
  42. PALLADON [Concomitant]
     Active Substance: HYDROMORPHONE
     Indication: LIVER ABSCESS
     Dosage: 16 MILLIGRAM
     Route: 048
     Dates: start: 20171116, end: 20180525
  43. SUFENTANIL [Concomitant]
     Active Substance: SUFENTANIL
     Indication: ANAESTHESIA
     Dosage: 50 MILLIGRAM
     Route: 041
     Dates: start: 20180615, end: 20180615
  44. FRESUBIN ENERGY [Concomitant]
     Indication: NUTRITIONAL SUPPLEMENTATION
     Route: 048
     Dates: start: 201807
  45. LOPERAMIDE [Concomitant]
     Active Substance: LOPERAMIDE
     Indication: DIARRHOEA
     Route: 048
     Dates: start: 201807
  46. ACICLOVIR [Concomitant]
     Active Substance: ACYCLOVIR
     Indication: INFECTION PROPHYLAXIS
     Dosage: 400 MILLIGRAM
     Route: 048
     Dates: start: 20171008, end: 20180503
  47. COTRIM FORTE [Concomitant]
     Active Substance: SULFAMETHOXAZOLE\TRIMETHOPRIM
     Indication: INFECTION PROPHYLAXIS
     Dosage: 960 MILLIGRAM
     Route: 048
     Dates: start: 20171019, end: 20180503
  48. NOVALGIN (METAMIZOLE SODIUM) [Concomitant]
     Active Substance: METAMIZOLE SODIUM
     Indication: COLORECTAL CANCER METASTATIC
     Route: 048
     Dates: start: 20180209, end: 20180525
  49. PALLADON [Concomitant]
     Active Substance: HYDROMORPHONE
     Indication: COLORECTAL CANCER METASTATIC
     Dosage: 16 MILLIGRAM
     Route: 048
     Dates: start: 20171116, end: 20180525
  50. EPHEDRIN [Concomitant]
     Active Substance: EPHEDRINE HYDROCHLORIDE
     Indication: ANAESTHESIA
     Dosage: 25 MILLIGRAM
     Route: 041
     Dates: start: 20180615, end: 20180615
  51. MIDAZOLAM [Concomitant]
     Active Substance: MIDAZOLAM HYDROCHLORIDE
     Indication: COLECTOMY
     Dosage: 7.5 MILLIGRAM
     Route: 048
     Dates: start: 20180615, end: 20180615
  52. LORAZEPAM. [Concomitant]
     Active Substance: LORAZEPAM
     Indication: SLEEP DISORDER
     Route: 048
     Dates: start: 20180710
  53. REVLIMID [Suspect]
     Active Substance: LENALIDOMIDE
     Indication: PLASMA CELL MYELOMA
     Route: 048
     Dates: start: 20110606, end: 20110628
  54. TORASEMIDE [Concomitant]
     Active Substance: TORSEMIDE
     Indication: OEDEMA PERIPHERAL
     Dosage: 30 MILLIGRAM
     Route: 048
     Dates: start: 20180208, end: 20180405
  55. XYLOCAINE [Concomitant]
     Active Substance: LIDOCAINE HYDROCHLORIDE
     Indication: LOCAL ANAESTHESIA
     Route: 058
     Dates: start: 20180531, end: 20180531
  56. PANTOPRAZOLE [Concomitant]
     Active Substance: PANTOPRAZOLE
     Indication: PROPHYLAXIS
     Dosage: 40 MG
     Route: 048
     Dates: start: 20180606
  57. JONOSTERIL (CALCIUM ACETATE\MAGNESIUM ACETATE\POTASSIUM ACETATE\SODIUM ACETATE\SODIUM CHLORIDE) [Concomitant]
     Active Substance: CALCIUM ACETATE\MAGNESIUM ACETATE\POTASSIUM ACETATE\SODIUM ACETATE\SODIUM CHLORI
     Indication: RENAL FAILURE
     Dosage: 500 MILLILITER
     Route: 041
     Dates: start: 20180503, end: 20180503
  58. NOREPINEPHRINE. [Concomitant]
     Active Substance: NOREPINEPHRINE
     Indication: COLECTOMY
     Dosage: 4 MILLIGRAM
     Route: 041
     Dates: start: 20180615, end: 20180615
  59. DISTIGMINE BROMIDE [Concomitant]
     Active Substance: DISTIGMINE BROMIDE
     Indication: PROPHYLAXIS
     Dosage: .5 MILLIGRAM
     Route: 041
     Dates: start: 20180618, end: 20180618
  60. POTASSIUM CHLORIDE. [Concomitant]
     Active Substance: POTASSIUM CHLORIDE
     Indication: PROPHYLAXIS AGAINST DEHYDRATION
     Dosage: 30 MILLILITER
     Route: 041
     Dates: start: 20180620, end: 20180620
  61. PHYTOMENADION [Concomitant]
     Indication: COLECTOMY
     Route: 041
     Dates: start: 20180616, end: 20180616

REACTIONS (1)
  - Colorectal cancer metastatic [Not Recovered/Not Resolved]

NARRATIVE: CASE EVENT DATE: 20180428
